FAERS Safety Report 5391676-3 (Version None)
Quarter: 2007Q3

REPORT INFORMATION
  Report Type: 
  Country: None (occurrence: None)
  Receive Date: 20070717
  Receipt Date: 20070706
  Transmission Date: 20080115
  Serious: Yes (Life-Threatening, Hospitalization, Disabling)
  Sender: FDA-Public Use
  Company Number: 129-20785-07070475

PATIENT
  Age: 64 Year
  Sex: Female

DRUGS (7)
  1. THALIDOMIDE [Suspect]
     Indication: MULTIPLE MYELOMA
     Dosage: 200 MG, 4 IN 1 D, ORAL
     Route: 048
     Dates: start: 20070423
  2. BISOCARD (BISOPROLOL FUMARATE) [Concomitant]
  3. TERTENSIF SR (INDAPAMIDE) [Concomitant]
  4. AMLOZEK (AMLODIPINE) [Concomitant]
  5. ACARD (ACETYLSALICYLIC ACID) [Concomitant]
  6. HYDROXYZINE [Concomitant]
  7. MIANSERIN (MIANSERIN) [Concomitant]

REACTIONS (4)
  - ADAMS-STOKES SYNDROME [None]
  - ASTHENIA [None]
  - HEART RATE INCREASED [None]
  - SYNCOPE [None]
